FAERS Safety Report 9164699 (Version 2)
Quarter: 2013Q1

REPORT INFORMATION
  Report Type: Spontaneous
  Country: JP (occurrence: None)
  Receive Date: 20130226
  Receipt Date: 20130320
  Transmission Date: 20140127
  Serious: No
  Sender: FDA-Public Use
  Company Number: SPI201300125

PATIENT
  Age: 94 Year
  Sex: Female

DRUGS (8)
  1. AMITIZA [Suspect]
     Indication: CONSTIPATION
     Route: 048
     Dates: start: 20130125, end: 20130126
  2. IRBESARTAN (IRBESARTAN) [Concomitant]
  3. FLUITRAN (TRICHLORMETHIAZIDE) [Concomitant]
  4. ISOSORBIDE MONONITRATE (ISOSORIDE MONONITRATE) [Concomitant]
  5. LOCHOL (FLUVASTATIN) [Concomitant]
  6. BUP-4 (PROPIVERINE HYDROCHLORDE) [Concomitant]
  7. ADALAT (NIFEDIPINE) [Concomitant]
  8. TAKEPORN (LANSOPRAZOLE) [Concomitant]

REACTIONS (5)
  - Dyspnoea [None]
  - Nausea [None]
  - Decreased appetite [None]
  - Vomiting [None]
  - Blood pressure immeasurable [None]
